FAERS Safety Report 7443263-0 (Version None)
Quarter: 2011Q2

REPORT INFORMATION
  Report Type: 
  Country: None (occurrence: None)
  Receive Date: 20110428
  Receipt Date: 20110420
  Transmission Date: 20111010
  Serious: Yes (Hospitalization)
  Sender: FDA-Public Use
  Company Number: B0715725A

PATIENT
  Sex: Male
  Weight: 70 kg

DRUGS (3)
  1. LAMIVUDINE [Concomitant]
     Indication: HIV INFECTION
     Dates: start: 20090109
  2. EFAVIRENZ [Concomitant]
     Indication: HIV INFECTION
     Dates: start: 20090619
  3. ZIAGEN [Suspect]
     Indication: HIV INFECTION
     Dosage: 600MG PER DAY
     Route: 048
     Dates: start: 20110215, end: 20110410

REACTIONS (4)
  - NAUSEA [None]
  - VOMITING [None]
  - SOMNOLENCE [None]
  - PYREXIA [None]
